FAERS Safety Report 11307666 (Version 1)
Quarter: 2015Q3

REPORT INFORMATION
  Report Type: Spontaneous
  Country: CZ (occurrence: CZ)
  Receive Date: 20150724
  Receipt Date: 20150724
  Transmission Date: 20151125
  Serious: Yes (Hospitalization, Other)
  Sender: FDA-Public Use
  Company Number: CZ-ACCORD-032427

PATIENT
  Age: 48 Year
  Sex: Female

DRUGS (2)
  1. TAMOXIFEN [Suspect]
     Active Substance: TAMOXIFEN
     Indication: HORMONE THERAPY
     Dosage: 1-0-0
  2. DOCETAXEL. [Suspect]
     Active Substance: DOCETAXEL
     Indication: BREAST CANCER
     Dosage: SECOND SERIES OF CHEMOTHERAPY, TOTAL 4 DOSES. STARTED ON 14-MAY.?BROKE THERAPY FOR WEEK AFTER 2DOSE
     Route: 042
     Dates: start: 20120514

REACTIONS (19)
  - Fatigue [Unknown]
  - Cardiac failure acute [Unknown]
  - Nausea [Unknown]
  - Erythema [Unknown]
  - Dysgeusia [Unknown]
  - Decreased appetite [Unknown]
  - Weight increased [Recovering/Resolving]
  - Systolic dysfunction [Recovered/Resolved]
  - Sleep disorder [Unknown]
  - Syncope [Unknown]
  - Nail discolouration [Unknown]
  - Epistaxis [Unknown]
  - Gait disturbance [Unknown]
  - Dry mouth [Unknown]
  - Pain [Unknown]
  - Skin exfoliation [Unknown]
  - Lacrimation increased [Unknown]
  - Oedema [Unknown]
  - Chills [Unknown]
